FAERS Safety Report 14204485 (Version 1)
Quarter: 2017Q4

REPORT INFORMATION
  Report Type: Spontaneous
  Country: US (occurrence: US)
  Receive Date: 20171119
  Receipt Date: 20171119
  Transmission Date: 20180321
  Serious: Yes (Other)
  Sender: FDA-Public Use
  Company Number: None

PATIENT
  Age: 54 Year
  Sex: Female
  Weight: 120.15 kg

DRUGS (1)
  1. SULFAMETHOXAZOLE / TRIMETHOPRIM [Suspect]
     Active Substance: SULFAMETHOXAZOLE\TRIMETHOPRIM
     Indication: URINARY TRACT INFECTION
     Dosage: ?          QUANTITY:10 TABLET(S);?
     Route: 048
     Dates: start: 20171117

REACTIONS (7)
  - Cold sweat [None]
  - Chills [None]
  - Myalgia [None]
  - Fatigue [None]
  - Hyperhidrosis [None]
  - Pyrexia [None]
  - Insomnia [None]

NARRATIVE: CASE EVENT DATE: 20171117
